FAERS Safety Report 24575686 (Version 1)
Quarter: 2024Q4

REPORT INFORMATION
  Report Type: Spontaneous
  Country: US (occurrence: None)
  Receive Date: 20241101
  Receipt Date: 20241101
  Transmission Date: 20250114
  Serious: Yes (Hospitalization)
  Sender: Public
  Company Number: None

PATIENT
  Age: 63 Year
  Sex: Male

DRUGS (2)
  1. LEVOFLOXACIN [Suspect]
     Active Substance: LEVOFLOXACIN
     Indication: Cellulitis
     Dosage: FREQUENCY : DAILY;?
     Route: 048
     Dates: start: 20240617, end: 20240620
  2. DOXYCYCLINE HYCLATE [Suspect]
     Active Substance: DOXYCYCLINE HYCLATE
     Dosage: FREQUENCY : TWICE A DAY;?
     Route: 048
     Dates: start: 20240617, end: 20240620

REACTIONS (8)
  - Erythema multiforme [None]
  - Pruritus [None]
  - Rash [None]
  - Urticaria [None]
  - Skin ulcer [None]
  - Culture wound positive [None]
  - Staphylococcal infection [None]
  - Pseudomonas infection [None]

NARRATIVE: CASE EVENT DATE: 20240621
